FAERS Safety Report 18906437 (Version 1)
Quarter: 2021Q1

REPORT INFORMATION
  Report Type: Spontaneous
  Country: US (occurrence: US)
  Receive Date: 20210218
  Receipt Date: 20210218
  Transmission Date: 20210420
  Serious: No
  Sender: FDA-Public Use
  Company Number: NVSC2021US031647

PATIENT
  Sex: Female

DRUGS (2)
  1. ALPELISIB [Suspect]
     Active Substance: ALPELISIB
     Indication: BREAST CANCER METASTATIC
     Dosage: UNK
     Route: 048
  2. ALPELISIB [Suspect]
     Active Substance: ALPELISIB
     Dosage: UNK (DOSE REDUCED)
     Route: 048

REACTIONS (1)
  - Hyperglycaemia [Unknown]
